FAERS Safety Report 9098932 (Version 1)
Quarter: 2013Q1

REPORT INFORMATION
  Report Type: Spontaneous
  Country: US (occurrence: US)
  Receive Date: 20130213
  Receipt Date: 20130213
  Transmission Date: 20140127
  Serious: No
  Sender: FDA-Public Use
  Company Number: US-BAYER-2013-017028

PATIENT
  Sex: Male

DRUGS (2)
  1. ALEVE CAPLET/TABLET,MIDOL EXTENDED RELIEF CAPLET [Suspect]
     Dosage: 4 DF, ONCE
     Route: 048
     Dates: start: 20130128, end: 20130128
  2. TYLENOL NOS [Concomitant]
     Dosage: 4 DF, ONCE
     Route: 048

REACTIONS (2)
  - Overdose [None]
  - Diarrhoea [None]
